FAERS Safety Report 8224736-X (Version None)
Quarter: 2012Q1

REPORT INFORMATION
  Report Type: 
  Country: None (occurrence: None)
  Receive Date: 20120321
  Receipt Date: 20120315
  Transmission Date: 20120608
  Serious: Yes (Hospitalization)
  Sender: FDA-Public Use
  Company Number: PHHY2012AU022013

PATIENT
  Sex: Male

DRUGS (2)
  1. FLUVOXAMINE MALEATE [Concomitant]
  2. CLOZARIL [Suspect]
     Dosage: 150 MG, UNK
     Dates: start: 20050620

REACTIONS (3)
  - EMPYEMA [None]
  - LUNG ABSCESS [None]
  - NEUTROPHIL COUNT INCREASED [None]
